FAERS Safety Report 9351058 (Version 3)
Quarter: 2013Q3

REPORT INFORMATION
  Report Type: Spontaneous
  Country: AT (occurrence: AT)
  Receive Date: 20130617
  Receipt Date: 20130703
  Transmission Date: 20140515
  Serious: Yes (Hospitalization, Other)
  Sender: FDA-Public Use
  Company Number: PHHY2013AT059936

PATIENT
  Age: 36 Year
  Sex: Male
  Weight: 96 kg

DRUGS (18)
  1. TEGRETOL [Suspect]
     Dosage: 400 MG, UNK
     Dates: start: 20120731, end: 20120807
  2. TEGRETOL [Suspect]
     Dosage: 800 MG, UNK
     Dates: start: 20120808, end: 20120827
  3. TEGRETOL [Suspect]
     Dosage: 1200 MG, UNK
     Dates: start: 20120828
  4. SYCREST [Suspect]
     Dosage: 5 MG
     Dates: start: 20120909, end: 20120909
  5. SYCREST [Suspect]
     Dosage: 10 MG
     Dates: start: 20120910, end: 20120910
  6. SYCREST [Suspect]
     Dosage: 20 MG
     Dates: start: 20120911, end: 20120919
  7. TRUXAL [Concomitant]
     Dosage: 100 MG
     Dates: start: 20120731, end: 20120806
  8. TRUXAL [Concomitant]
     Dosage: 200 MG
     Dates: start: 20120807, end: 20120827
  9. TRUXAL [Concomitant]
     Dosage: 300 MG
     Dates: start: 20120828, end: 20120903
  10. TRUXAL [Concomitant]
     Dosage: 200 MG
     Dates: start: 20120904, end: 20120907
  11. TRUXAL [Concomitant]
     Dosage: 100 MG, UNK
     Dates: start: 20120908
  12. TEMESTA [Concomitant]
     Dosage: 7.5 MG
     Dates: start: 20120731, end: 20120822
  13. TEMESTA [Concomitant]
     Dosage: 6.5 MG
     Dates: start: 20120823, end: 20120906
  14. TEMESTA [Concomitant]
     Dosage: 4.5 MG
     Dates: start: 20120907, end: 20120914
  15. TEMESTA [Concomitant]
     Dosage: 2.5 MG
     Dates: start: 20120915
  16. SEROQUEL [Concomitant]
     Dosage: 800 MG, UNK
     Dates: start: 20120731, end: 20120831
  17. CLAFORAN [Concomitant]
     Dosage: 2 G, UNK
     Dates: start: 20120917, end: 20120918
  18. AMINOVEN [Concomitant]
     Dosage: 1000 G
     Dates: start: 20120917, end: 20120917

REACTIONS (3)
  - Hepatitis toxic [Recovered/Resolved]
  - Gamma-glutamyltransferase increased [Recovered/Resolved]
  - Aspartate aminotransferase increased [Recovered/Resolved]
